FAERS Safety Report 10376606 (Version 3)
Quarter: 2016Q3

REPORT INFORMATION
  Report Type: Report from Study
  Country: CA (occurrence: CA)
  Receive Date: 20140811
  Receipt Date: 20160912
  Transmission Date: 20161109
  Serious: Yes (Other)
  Sender: FDA-Public Use
  Company Number: CA-CELGENEUS-028-21880-14075123

PATIENT
  Age: 62 Year
  Sex: Female
  Weight: 60 kg

DRUGS (38)
  1. REVLIMID [Suspect]
     Active Substance: LENALIDOMIDE
     Indication: B-CELL LYMPHOMA
     Dosage: 20 MILLIGRAM
     Route: 048
     Dates: start: 20140628, end: 20140710
  2. RITUXIMAB [Suspect]
     Active Substance: RITUXIMAB
     Indication: B-CELL LYMPHOMA
     Route: 041
     Dates: start: 20140627, end: 20140711
  3. RITUXIMAB [Suspect]
     Active Substance: RITUXIMAB
     Route: 041
  4. VITAMIN B [Concomitant]
     Active Substance: VITAMIN B
     Indication: HYPERSENSITIVITY VASCULITIS
  5. MACROBID [Concomitant]
     Active Substance: NITROFURANTOIN\NITROFURANTOIN MONOHYDRATE
     Indication: HYPERSENSITIVITY VASCULITIS
  6. RANITIDINE. [Concomitant]
     Active Substance: RANITIDINE
     Indication: ANXIETY
     Dosage: 1000 MILLIGRAM
     Route: 048
     Dates: start: 20140723, end: 20140817
  7. TRAZODONE [Concomitant]
     Active Substance: TRAZODONE HYDROCHLORIDE
     Indication: PRODUCT USED FOR UNKNOWN INDICATION
     Dosage: .5 MILLIGRAM
     Route: 065
  8. MELATONIN [Concomitant]
     Active Substance: MELATONIN
     Indication: HYPERSENSITIVITY VASCULITIS
  9. OXAZEPAM. [Concomitant]
     Active Substance: OXAZEPAM
     Indication: HYPERSENSITIVITY VASCULITIS
  10. OXAZEPAM. [Concomitant]
     Active Substance: OXAZEPAM
     Indication: CAPILLARITIS
  11. POLYETHYLENE GLYCOL [Concomitant]
     Active Substance: POLYETHYLENE GLYCOLS
     Indication: HYPERSENSITIVITY VASCULITIS
  12. OXAZEPAM. [Concomitant]
     Active Substance: OXAZEPAM
     Indication: PRODUCT USED FOR UNKNOWN INDICATION
     Dosage: 50 MILLIGRAM
     Route: 065
  13. ATIVAN [Concomitant]
     Active Substance: LORAZEPAM
     Indication: ANXIETY
     Dosage: 500 MILLIGRAM
     Route: 048
     Dates: start: 20140718
  14. RANITIDINE. [Concomitant]
     Active Substance: RANITIDINE
     Indication: HYPERSENSITIVITY VASCULITIS
  15. MELATONIN [Concomitant]
     Active Substance: MELATONIN
     Indication: CAPILLARITIS
  16. VITAMIN C [Concomitant]
     Active Substance: ASCORBIC ACID
     Indication: CAPILLARITIS
  17. VITAMIN D [Concomitant]
     Active Substance: CHOLECALCIFEROL
     Indication: HYPERSENSITIVITY VASCULITIS
  18. VITAMIN B [Concomitant]
     Active Substance: VITAMIN B
     Indication: SUPPLEMENTATION THERAPY
     Route: 065
     Dates: start: 201406
  19. MACROBID [Concomitant]
     Active Substance: NITROFURANTOIN\NITROFURANTOIN MONOHYDRATE
     Indication: URINARY TRACT INFECTION
     Dosage: 10 MILLIGRAM
     Route: 065
     Dates: start: 20140713, end: 20140714
  20. POLYETHYLENE GLYCOL [Concomitant]
     Active Substance: POLYETHYLENE GLYCOLS
     Indication: CAPILLARITIS
  21. ATIVAN [Concomitant]
     Active Substance: LORAZEPAM
     Indication: HYPERSENSITIVITY VASCULITIS
  22. BENDAMUSTINE [Concomitant]
     Active Substance: BENDAMUSTINE
     Indication: B-CELL LYMPHOMA
     Dosage: 30 MILLIGRAM
     Route: 065
  23. RITUXIMAB [Suspect]
     Active Substance: RITUXIMAB
     Route: 065
     Dates: start: 20140725
  24. METOCLOPRAMIDE. [Concomitant]
     Active Substance: METOCLOPRAMIDE
     Indication: NAUSEA
     Route: 065
     Dates: start: 201406
  25. METOCLOPRAMIDE. [Concomitant]
     Active Substance: METOCLOPRAMIDE
     Indication: HYPERSENSITIVITY VASCULITIS
  26. MELATONIN [Concomitant]
     Active Substance: MELATONIN
     Indication: INSOMNIA
     Route: 065
     Dates: start: 201406
  27. VITAMIN C [Concomitant]
     Active Substance: ASCORBIC ACID
     Indication: HYPERSENSITIVITY VASCULITIS
  28. MACROBID [Concomitant]
     Active Substance: NITROFURANTOIN\NITROFURANTOIN MONOHYDRATE
     Indication: CAPILLARITIS
  29. RANITIDINE. [Concomitant]
     Active Substance: RANITIDINE
     Indication: CAPILLARITIS
  30. VITAMIN C [Concomitant]
     Active Substance: ASCORBIC ACID
     Indication: SUPPLEMENTATION THERAPY
     Route: 065
     Dates: start: 201406
  31. VITAMIN D [Concomitant]
     Active Substance: CHOLECALCIFEROL
     Indication: CAPILLARITIS
  32. VITAMIN B [Concomitant]
     Active Substance: VITAMIN B
     Indication: CAPILLARITIS
  33. ATIVAN [Concomitant]
     Active Substance: LORAZEPAM
     Indication: CAPILLARITIS
  34. METOCLOPRAMIDE. [Concomitant]
     Active Substance: METOCLOPRAMIDE
     Indication: CAPILLARITIS
  35. VITAMIN D [Concomitant]
     Active Substance: CHOLECALCIFEROL
     Indication: SUPPLEMENTATION THERAPY
     Route: 065
     Dates: start: 201406
  36. POLYETHYLENE GLYCOL [Concomitant]
     Active Substance: POLYETHYLENE GLYCOLS
     Indication: CONSTIPATION
     Dosage: 10 MILLIGRAM
     Route: 065
     Dates: start: 20140713
  37. LORAZEPAM. [Concomitant]
     Active Substance: LORAZEPAM
     Indication: PRODUCT USED FOR UNKNOWN INDICATION
     Dosage: 18.5 GRAM
     Route: 065
  38. ACETYLSALICYLIC ACID [Concomitant]
     Active Substance: ASPIRIN
     Indication: THROMBOSIS PROPHYLAXIS
     Dosage: 50 MILLIGRAM
     Route: 065

REACTIONS (2)
  - Hypersensitivity vasculitis [Recovered/Resolved]
  - Capillaritis [Recovered/Resolved]

NARRATIVE: CASE EVENT DATE: 20140716
